FAERS Safety Report 7973258-X (Version None)
Quarter: 2011Q4

REPORT INFORMATION
  Report Type: 
  Country: None (occurrence: None)
  Receive Date: 20111213
  Receipt Date: 20111205
  Transmission Date: 20120403
  Serious: Yes (Other)
  Sender: FDA-Public Use
  Company Number: PHHY2011DE107611

PATIENT

DRUGS (1)
  1. TASIGNA [Suspect]
     Dosage: 800 MG/ DAY
     Route: 048

REACTIONS (3)
  - VOMITING [None]
  - RENAL DISORDER [None]
  - BLOOD CREATININE INCREASED [None]
